FAERS Safety Report 4930719-5 (Version None)
Quarter: 2006Q1

REPORT INFORMATION
  Report Type: 
  Country: None (occurrence: None)
  Receive Date: 20060227
  Receipt Date: 20051117
  Transmission Date: 20060701
  Serious: Yes (Hospitalization)
  Sender: FDA-Public Use
  Company Number: US-ELI_LILLY_AND_CO-US_0502113393

PATIENT
  Age: 69 Year
  Sex: Female

DRUGS (9)
  1. PERMAX [Suspect]
     Indication: PARKINSON'S DISEASE
     Dosage: SEE IMAGE
     Dates: end: 20030226
  2. PERMAX [Suspect]
     Indication: PARKINSON'S DISEASE
     Dosage: SEE IMAGE
     Dates: start: 20001208
  3. SYNTHROID [Concomitant]
  4. SINEMET [Concomitant]
  5. COMTAN [Concomitant]
  6. NOLVADEX [Concomitant]
  7. ZOLOFT [Concomitant]
  8. RISPERIDONE [Concomitant]
  9. AMANTADINE HCL [Concomitant]

REACTIONS (35)
  - AORTIC ARTERIOSCLEROSIS [None]
  - AORTIC VALVE INCOMPETENCE [None]
  - ARTHRALGIA [None]
  - CARDIAC VALVE DISEASE [None]
  - CARDIOMEGALY [None]
  - CARPAL TUNNEL DECOMPRESSION [None]
  - CEREBELLAR INFARCTION [None]
  - CEREBRAL INFARCTION [None]
  - CONDITION AGGRAVATED [None]
  - DEHYDRATION [None]
  - DEPRESSED LEVEL OF CONSCIOUSNESS [None]
  - DIFFICULTY IN WALKING [None]
  - DILATATION VENTRICULAR [None]
  - DIVERTICULUM [None]
  - EATING DISORDER [None]
  - EMOTIONAL DISTRESS [None]
  - HAEMORRHOIDS [None]
  - HYPERLIPIDAEMIA [None]
  - INTERVERTEBRAL DISC DEGENERATION [None]
  - LACUNAR INFARCTION [None]
  - MUSCLE RIGIDITY [None]
  - OSTEOPOROSIS [None]
  - OVERWEIGHT [None]
  - PARKINSON'S DISEASE [None]
  - PERICARDITIS [None]
  - PLEURAL EFFUSION [None]
  - POST PROCEDURAL COMPLICATION [None]
  - PULMONARY HYPERTENSION [None]
  - PULMONARY OEDEMA [None]
  - PULMONARY VALVE INCOMPETENCE [None]
  - PYREXIA [None]
  - RHEUMATIC HEART DISEASE [None]
  - SPINAL OSTEOARTHRITIS [None]
  - STRESS [None]
  - WEIGHT DECREASED [None]
